FAERS Safety Report 7647250-9 (Version None)
Quarter: 2011Q3

REPORT INFORMATION
  Report Type: 
  Country: None (occurrence: None)
  Receive Date: 20110801
  Receipt Date: 20110719
  Transmission Date: 20111222
  Serious: Yes (Other)
  Sender: FDA-Public Use
  Company Number: US-ROCHE-760337

PATIENT
  Sex: Male
  Weight: 56.7 kg

DRUGS (3)
  1. ACCUTANE [Suspect]
     Route: 048
     Dates: start: 20000101, end: 20000101
  2. PREDNISONE [Concomitant]
     Dates: start: 19950101
  3. ACCUTANE [Suspect]
     Dosage: FREQUENCY: QD
     Route: 048
     Dates: start: 19950101, end: 19951201

REACTIONS (8)
  - CROHN'S DISEASE [None]
  - GASTROINTESTINAL INJURY [None]
  - CYST [None]
  - HEAD DEFORMITY [None]
  - INFLAMMATORY BOWEL DISEASE [None]
  - IRRITABLE BOWEL SYNDROME [None]
  - INTESTINAL OBSTRUCTION [None]
  - EMOTIONAL DISTRESS [None]
